FAERS Safety Report 20976819 (Version 1)
Quarter: 2022Q2

REPORT INFORMATION
  Report Type: Spontaneous
  Country: ES (occurrence: None)
  Receive Date: 20220617
  Receipt Date: 20220617
  Transmission Date: 20220721
  Serious: Yes (Life-Threatening)
  Sender: FDA-Public Use
  Company Number: 2022A219955

PATIENT
  Age: 6 Month
  Sex: Female

DRUGS (5)
  1. OMEPRAZOLE [Interacting]
     Active Substance: OMEPRAZOLE
     Indication: Prophylaxis
     Route: 048
     Dates: start: 20220414
  2. FLUCONAZOLE [Interacting]
     Active Substance: FLUCONAZOLE
     Route: 042
     Dates: start: 20220427, end: 20220430
  3. WARFARIN SODIUM [Interacting]
     Active Substance: WARFARIN SODIUM
     Indication: Subclavian artery thrombosis
     Dosage: 2.5MG UNKNOWN
     Route: 048
     Dates: start: 20220422, end: 20220429
  4. HEPARIN SODIUM [Interacting]
     Active Substance: HEPARIN SODIUM
     Route: 042
     Dates: start: 20220417, end: 20220430
  5. AMIKACINA SULFATO (372SU) [Concomitant]
     Route: 042
     Dates: start: 20220429, end: 20220430

REACTIONS (2)
  - Haematuria [Recovered/Resolved]
  - Catheter site haemorrhage [Recovered/Resolved]

NARRATIVE: CASE EVENT DATE: 20220501
